FAERS Safety Report 12785757 (Version 1)
Quarter: 2016Q3

REPORT INFORMATION
  Report Type: Spontaneous
  Country: US (occurrence: US)
  Receive Date: 20160927
  Receipt Date: 20160927
  Transmission Date: 20161109
  Serious: No
  Sender: FDA-Public Use
  Company Number: US-FRI-1000080348

PATIENT
  Age: 78 Year
  Sex: Male

DRUGS (9)
  1. LINZESS [Suspect]
     Active Substance: LINACLOTIDE
     Indication: CONSTIPATION
     Dosage: 145 ?G, QD
     Route: 048
     Dates: start: 201606
  2. PLAVIX [Concomitant]
     Active Substance: CLOPIDOGREL BISULFATE
     Indication: CORONARY ARTERY DISEASE
     Dosage: UNK
     Route: 048
  3. CRESTOR [Concomitant]
     Active Substance: ROSUVASTATIN CALCIUM
     Dosage: UNK
     Route: 048
  4. LINZESS [Suspect]
     Active Substance: LINACLOTIDE
     Indication: CONSTIPATION
     Dosage: 145 ?G, QD
     Dates: start: 201601, end: 201601
  5. LISINOPRIL. [Concomitant]
     Active Substance: LISINOPRIL
     Indication: HYPERTENSION
     Dosage: UNK
     Route: 048
  6. TAMSULOSIN [Concomitant]
     Active Substance: TAMSULOSIN
     Indication: ILL-DEFINED DISORDER
     Dosage: UNK
     Route: 048
  7. HYDROCODONE MEDICATION [Concomitant]
     Indication: BACK PAIN
     Dosage: AS NEEDED
     Route: 048
  8. HYDROCODONE MEDICATION [Concomitant]
     Indication: PAIN
  9. FINASTERIDE. [Concomitant]
     Active Substance: FINASTERIDE
     Indication: ILL-DEFINED DISORDER
     Dosage: UNK
     Route: 048

REACTIONS (5)
  - Gastrointestinal motility disorder [Not Recovered/Not Resolved]
  - Off label use [Recovered/Resolved]
  - Drug ineffective [Recovered/Resolved]
  - Diarrhoea [Not Recovered/Not Resolved]
  - Diarrhoea [Recovered/Resolved]

NARRATIVE: CASE EVENT DATE: 201601
